FAERS Safety Report 8588229-2 (Version None)
Quarter: 2012Q3

REPORT INFORMATION
  Report Type: 
  Country: None (occurrence: None)
  Receive Date: 20120803
  Receipt Date: 20120803
  Transmission Date: 20120928
  Serious: Yes (Other)
  Sender: FDA-Public Use
  Company Number: None

PATIENT
  Age: 5 Year
  Sex: Female

DRUGS (1)
  1. ALTABAX [Suspect]
     Indication: BACTERIAL INFECTION
     Dosage: 15 G 1% TWICE A DAY TOP
     Route: 061
     Dates: start: 20120801

REACTIONS (2)
  - APPLICATION SITE SWELLING [None]
  - APPLICATION SITE PRURITUS [None]
